FAERS Safety Report 17347652 (Version 2)
Quarter: 2020Q1

REPORT INFORMATION
  Report Type: Spontaneous
  Country: JP (occurrence: JP)
  Receive Date: 20200130
  Receipt Date: 20200317
  Transmission Date: 20200409
  Serious: Yes (Other)
  Sender: FDA-Public Use
  Company Number: JP-PFIZER INC-2019503271

PATIENT
  Age: 84 Year
  Sex: Male

DRUGS (8)
  1. LYRICA [Suspect]
     Active Substance: PREGABALIN
     Dosage: 75 MG, 1X/DAY
     Route: 048
     Dates: start: 20191029, end: 20191105
  2. CELECOX [Concomitant]
     Active Substance: CELECOXIB
     Indication: PAIN
     Dosage: UNK
     Dates: start: 20191029
  3. LYRICA [Suspect]
     Active Substance: PREGABALIN
     Dosage: 150 MG, 1X/DAY (IN THE EVENING)
     Route: 048
     Dates: start: 20191106, end: 20191118
  4. LANDSEN [Suspect]
     Active Substance: CLONAZEPAM
     Indication: FACIAL NEURALGIA
     Dosage: UNK
     Dates: start: 201410
  5. OPALMON [Suspect]
     Active Substance: LIMAPROST
     Indication: NEURALGIA
     Dosage: UNK
     Dates: start: 20190917
  6. LYRICA [Suspect]
     Active Substance: PREGABALIN
     Indication: NEURALGIA
     Dosage: 25 MG, DAILY
     Route: 048
  7. LYRICA [Suspect]
     Active Substance: PREGABALIN
     Dosage: 50 MG, 1X/DAY
     Route: 048
     Dates: start: 20191005, end: 20191028
  8. LYRICA [Suspect]
     Active Substance: PREGABALIN
     Dosage: 75 MG, 2X/DAY
     Route: 048
     Dates: start: 20191119

REACTIONS (5)
  - Feeling abnormal [Not Recovered/Not Resolved]
  - Syncope [Recovered/Resolved]
  - Anaemia [Recovered/Resolved]
  - Dizziness [Recovered/Resolved]
  - Tooth injury [Recovered/Resolved]

NARRATIVE: CASE EVENT DATE: 20191110
